FAERS Safety Report 18951217 (Version 8)
Quarter: 2021Q4

REPORT INFORMATION
  Report Type: Spontaneous
  Country: JP (occurrence: JP)
  Receive Date: 20210228
  Receipt Date: 20211125
  Transmission Date: 20220303
  Serious: Yes (Death, Hospitalization)
  Sender: FDA-Public Use
  Company Number: JP-CHUGAI-A2021006492ROCHE

PATIENT
  Age: 47 Year
  Sex: Male
  Weight: 63 kg

DRUGS (8)
  1. ACTEMRA [Suspect]
     Active Substance: TOCILIZUMAB
     Indication: Takayasu^s arteritis
     Route: 058
     Dates: start: 20200710, end: 20210130
  2. ACTEMRA [Suspect]
     Active Substance: TOCILIZUMAB
     Route: 058
     Dates: start: 20210408, end: 202104
  3. PREDNISOLONE [Suspect]
     Active Substance: PREDNISOLONE
     Indication: Product used for unknown indication
     Dosage: 70
     Route: 065
     Dates: start: 202006
  4. PREDNISOLONE [Suspect]
     Active Substance: PREDNISOLONE
     Dosage: 50
     Route: 065
  5. SULFAMETHOXAZOLE\TRIMETHOPRIM [Concomitant]
     Active Substance: SULFAMETHOXAZOLE\TRIMETHOPRIM
     Dosage: 0.5 UNK
     Route: 048
     Dates: start: 202006
  6. ASPIRIN [Concomitant]
     Active Substance: ASPIRIN
     Dosage: 100 MILLIGRAM
     Route: 048
     Dates: start: 202006, end: 202102
  7. AMLODIPINE BESYLATE [Concomitant]
     Active Substance: AMLODIPINE BESYLATE
     Dosage: 5 MILLIGRAM
     Dates: start: 202006
  8. BONALON [Concomitant]
     Active Substance: ALENDRONATE SODIUM
     Dosage: 35 MILLIGRAM
     Route: 048
     Dates: start: 202006

REACTIONS (6)
  - Haematoma muscle [Not Recovered/Not Resolved]
  - Shock haemorrhagic [Not Recovered/Not Resolved]
  - Haemorrhage [Unknown]
  - Sepsis [Fatal]
  - Platelet count decreased [Not Recovered/Not Resolved]
  - Hypofibrinogenaemia [Not Recovered/Not Resolved]

NARRATIVE: CASE EVENT DATE: 20210206
